FAERS Safety Report 19101411 (Version 2)
Quarter: 2021Q2

REPORT INFORMATION
  Report Type: Spontaneous
  Country: IQ (occurrence: IQ)
  Receive Date: 20210407
  Receipt Date: 20210517
  Transmission Date: 20210717
  Serious: Yes (Other)
  Sender: FDA-Public Use
  Company Number: IQ-CELLTRION INC.-2021IQ004672

PATIENT

DRUGS (2)
  1. REMSIMA [Suspect]
     Active Substance: INFLIXIMAB
     Dosage: 5 MG/KG EVERY 3?4 WEEKS
     Route: 042
  2. REMSIMA [Suspect]
     Active Substance: INFLIXIMAB
     Indication: ANKYLOSING SPONDYLITIS
     Dosage: 0.0893 MG/KG (5 MG/KG, 1 IN 8 WEEKS)
     Route: 042

REACTIONS (3)
  - Ankylosing spondylitis [Unknown]
  - Off label use [Unknown]
  - Remission not achieved [Unknown]
